FAERS Safety Report 6640370-7 (Version None)
Quarter: 2010Q1

REPORT INFORMATION
  Report Type: 
  Country: None (occurrence: None)
  Receive Date: 20100303
  Receipt Date: 20090122
  Transmission Date: 20100710
  Serious: Yes (Disabling)
  Sender: FDA-Public Use
  Company Number: 610210

PATIENT
  Age: 82 Year
  Sex: Female
  Weight: 49.9 kg

DRUGS (3)
  1. BONIVA [Suspect]
     Indication: OSTEOPOROSIS
     Dosage: 3 MG 1 PER 3 MONTH INTRAVENOUS
     Route: 042
     Dates: start: 20060824, end: 20071204
  2. FUROSEMIDE [Concomitant]
  3. DIGOXIN [Concomitant]

REACTIONS (1)
  - OSTEONECROSIS OF JAW [None]
